FAERS Safety Report 8966779 (Version 3)
Quarter: 2013Q3

REPORT INFORMATION
  Report Type: Spontaneous
  Country: US (occurrence: US)
  Receive Date: 20121214
  Receipt Date: 20130830
  Transmission Date: 20140515
  Serious: Yes (Hospitalization, Other)
  Sender: FDA-Public Use
  Company Number: US-009507513-1103USA00971

PATIENT
  Sex: Female
  Weight: 72.56 kg

DRUGS (8)
  1. FOSAMAX [Suspect]
     Indication: OSTEOPOROSIS
     Dosage: 70 MG, QW
     Route: 048
     Dates: start: 200105
  2. FOSAMAX [Suspect]
     Indication: OSTEOPOROSIS
     Dosage: 70 MG, QW
     Route: 048
     Dates: start: 200803, end: 200805
  3. ALENDRONATE SODIUM [Suspect]
     Indication: OSTEOPOROSIS
     Dosage: 70 MG, QW
     Route: 048
     Dates: start: 20080530, end: 200809
  4. ALENDRONATE SODIUM [Suspect]
     Indication: OSTEOPOROSIS
     Dosage: 70 MG, QW
     Route: 048
     Dates: start: 20080916
  5. VITAMINS (UNSPECIFIED) [Concomitant]
     Dosage: ONE DAILY
     Dates: start: 2000
  6. OS-CAL + D [Concomitant]
     Dosage: 1000/80IU QD
     Dates: start: 2000
  7. ADVAIR [Concomitant]
     Indication: ASTHMA
     Dosage: PRN
     Dates: start: 1997
  8. ALBUTEROL [Concomitant]
     Indication: ASTHMA
     Dosage: PRN
     Dates: start: 1997

REACTIONS (9)
  - Femur fracture [Recovered/Resolved]
  - Internal fixation of fracture [Recovered/Resolved]
  - Open reduction of fracture [Recovered/Resolved with Sequelae]
  - Femur fracture [Recovered/Resolved with Sequelae]
  - Bursitis [Unknown]
  - Endodontic procedure [Unknown]
  - Appendicectomy [Unknown]
  - Hypertension [Recovering/Resolving]
  - Osteopenia [Unknown]
